FAERS Safety Report 21574658 (Version 2)
Quarter: 2022Q4

REPORT INFORMATION
  Report Type: Report from Study
  Country: GR (occurrence: GR)
  Receive Date: 20221109
  Receipt Date: 20221110
  Transmission Date: 20230113
  Serious: Yes (Death, Life-Threatening)
  Sender: FDA-Public Use
  Company Number: GR-ABBVIE-4193448

PATIENT
  Sex: Female
  Weight: 72 kg

DRUGS (1)
  1. VENETOCLAX [Suspect]
     Active Substance: VENETOCLAX
     Indication: Acute myeloid leukaemia
     Dosage: DURATION TEXT: 2 CYCLES, DAILY, DAYS 1-3 AND 5- 6
     Route: 048
     Dates: start: 20220810, end: 20220913

REACTIONS (1)
  - Poisoning [Fatal]
